FAERS Safety Report 19195208 (Version 3)
Quarter: 2021Q3

REPORT INFORMATION
  Report Type: Spontaneous
  Country: BR (occurrence: BR)
  Receive Date: 20210429
  Receipt Date: 20210804
  Transmission Date: 20211014
  Serious: Yes (Other)
  Sender: FDA-Public Use
  Company Number: BR-ABBVIE-21K-020-3874664-00

PATIENT
  Age: 51 Year
  Sex: Female
  Weight: 75 kg

DRUGS (6)
  1. HUMIRA [Suspect]
     Active Substance: ADALIMUMAB
     Indication: PSORIASIS
     Dosage: UNSPECIFIED DOSE
     Route: 058
     Dates: start: 201912, end: 202103
  2. ALPRAZOLAM. [Suspect]
     Active Substance: ALPRAZOLAM
     Indication: PRODUCT USED FOR UNKNOWN INDICATION
     Dosage: UNSPECIFIED DOSE
     Route: 065
  3. ASTRAZENECA COVID?19 VACCINE [Concomitant]
     Active Substance: AZD-1222
     Indication: COVID-19 IMMUNISATION
     Route: 030
     Dates: start: 20210511, end: 20210511
  4. SERTRALINE [Concomitant]
     Active Substance: SERTRALINE HYDROCHLORIDE
     Indication: DEPRESSION
     Route: 048
     Dates: start: 2009
  5. LORAZEPAM. [Concomitant]
     Active Substance: LORAZEPAM
     Indication: ANXIETY
     Route: 048
     Dates: start: 2009
  6. HUMIRA [Suspect]
     Active Substance: ADALIMUMAB
     Indication: PSORIATIC ARTHROPATHY
     Dosage: UNSPECIFIED DOSE
     Route: 058
     Dates: start: 2021

REACTIONS (32)
  - Anal fissure [Recovering/Resolving]
  - Dry skin [Not Recovered/Not Resolved]
  - Joint noise [Not Recovered/Not Resolved]
  - Gait disturbance [Recovering/Resolving]
  - Aspartate aminotransferase abnormal [Unknown]
  - Pain [Recovered/Resolved]
  - Fear [Unknown]
  - Skin exfoliation [Not Recovered/Not Resolved]
  - Erythema [Not Recovered/Not Resolved]
  - Epistaxis [Not Recovered/Not Resolved]
  - Alanine aminotransferase abnormal [Unknown]
  - Diarrhoea [Not Recovered/Not Resolved]
  - Mobility decreased [Recovering/Resolving]
  - Anal haemorrhage [Recovered/Resolved]
  - Joint swelling [Recovered/Resolved]
  - Gastrointestinal disorder [Unknown]
  - Balance disorder [Recovered/Resolved]
  - Dizziness [Recovered/Resolved]
  - Thinking abnormal [Recovered/Resolved]
  - Haemorrhage [Not Recovered/Not Resolved]
  - Neck pain [Recovered/Resolved]
  - Psoriasis [Recovering/Resolving]
  - Somnolence [Recovered/Resolved]
  - Anxiety [Unknown]
  - Immunosuppression [Unknown]
  - Gingival bleeding [Not Recovered/Not Resolved]
  - Impaired driving ability [Recovered/Resolved]
  - Psoriasis [Not Recovered/Not Resolved]
  - Arthralgia [Not Recovered/Not Resolved]
  - Mental disorder [Recovered/Resolved]
  - Constipation [Recovered/Resolved]
  - Psoriasis [Recovered/Resolved]

NARRATIVE: CASE EVENT DATE: 202007
